FAERS Safety Report 9805319 (Version 1)
Quarter: 2014Q1

REPORT INFORMATION
  Report Type: Spontaneous
  Country: IT (occurrence: None)
  Receive Date: 20140106
  Receipt Date: 20140106
  Transmission Date: 20141002
  Serious: Yes (Other)
  Sender: FDA-Public Use
  Company Number: FK201400011

PATIENT
  Age: 11 Year
  Sex: Male

DRUGS (1)
  1. ANASTROZOLE (MANUFACTURER UNKNOWN )(ANASTROZOLE)(ANASTROZOLE) [Suspect]
     Indication: GYNAECOMASTIA

REACTIONS (1)
  - Growth retardation [None]
